FAERS Safety Report 16775649 (Version 7)
Quarter: 2021Q1

REPORT INFORMATION
  Report Type: Spontaneous
  Country: IN (occurrence: IN)
  Receive Date: 20190905
  Receipt Date: 20210330
  Transmission Date: 20210419
  Serious: Yes (Hospitalization, Other)
  Sender: FDA-Public Use
  Company Number: IN-PFIZER INC-2019348065

PATIENT
  Age: 67 Year
  Sex: Male

DRUGS (2)
  1. CALCIMAX FORTE [Concomitant]
     Dosage: 1 G, DAILY FOR 4 MONTHS
  2. CRIZALK [Suspect]
     Active Substance: CRIZOTINIB
     Indication: LUNG NEOPLASM
     Dosage: 250 MG, 2X/DAY
     Route: 048
     Dates: start: 20181220

REACTIONS (11)
  - Musculoskeletal pain [Unknown]
  - Peripheral swelling [Unknown]
  - Diabetes mellitus [Unknown]
  - Asthenia [Unknown]
  - Pain in extremity [Unknown]
  - Cellulitis [Unknown]
  - Fall [Unknown]
  - Inappropriate schedule of product administration [Unknown]
  - Abdominal pain upper [Unknown]
  - Lung opacity [Unknown]
  - Pleural effusion [Unknown]

NARRATIVE: CASE EVENT DATE: 20200630
